FAERS Safety Report 6696491-6 (Version None)
Quarter: 2010Q2

REPORT INFORMATION
  Report Type: 
  Country: None (occurrence: None)
  Receive Date: 20100426
  Receipt Date: 20091007
  Transmission Date: 20101027
  Serious: No
  Sender: FDA-Public Use
  Company Number: A0810747A

PATIENT
  Age: 12 Year
  Sex: Female

DRUGS (5)
  1. ONDANSETRON [Suspect]
     Dosage: 4MG VARIABLE DOSE
     Route: 048
     Dates: start: 20090921
  2. OMEPRAZOLE [Concomitant]
  3. ZYRTEC [Concomitant]
  4. SINGULAIR [Concomitant]
  5. PULMICORT [Concomitant]

REACTIONS (3)
  - ABDOMINAL PAIN UPPER [None]
  - DRUG INEFFECTIVE [None]
  - NAUSEA [None]
